FAERS Safety Report 9975756 (Version 1)
Quarter: 2014Q1

REPORT INFORMATION
  Report Type: Other
  Country: US (occurrence: US)
  Receive Date: 20140306
  Receipt Date: 20140306
  Transmission Date: 20141002
  Serious: Yes (Death)
  Sender: FDA-Public Use
  Company Number: US-FRI-1000054851

PATIENT
  Age: 66 Year
  Sex: Male

DRUGS (9)
  1. CITALOPRAM [Suspect]
  2. BUPRENORPHINE/NALOXONE [Suspect]
  3. METHADONE [Suspect]
  4. LORAZEPAM [Suspect]
  5. HYDROCODONE [Suspect]
  6. NALOXONE [Suspect]
  7. HEROIN [Suspect]
  8. MORPHINE [Suspect]
  9. CODEINE [Suspect]

REACTIONS (1)
  - Intentional drug misuse [Fatal]
